FAERS Safety Report 6668279-3 (Version None)
Quarter: 2010Q2

REPORT INFORMATION
  Report Type: 
  Country: None (occurrence: None)
  Receive Date: 20100405
  Receipt Date: 20100405
  Transmission Date: 20101027
  Serious: Yes (Disabling)
  Sender: FDA-Public Use
  Company Number: None

PATIENT
  Sex: Female
  Weight: 58.9676 kg

DRUGS (4)
  1. TOPROL-XL [Suspect]
     Indication: CHEST DISCOMFORT
     Dosage: 50 MG QD 8D PO
     Route: 048
     Dates: start: 20080207
  2. TOPROL-XL [Suspect]
     Indication: MITRAL VALVE PROLAPSE
     Dosage: 50 MG QD 8D PO
     Route: 048
     Dates: start: 20080207
  3. ATENOLOL [Suspect]
     Indication: CHEST DISCOMFORT
     Dosage: 25MG QD 8D PO
     Route: 048
     Dates: start: 20080501
  4. ATENOLOL [Suspect]
     Indication: MITRAL VALVE PROLAPSE
     Dosage: 25MG QD 8D PO
     Route: 048
     Dates: start: 20080501

REACTIONS (3)
  - EYE PAIN [None]
  - PHOTOPHOBIA [None]
  - VISUAL ACUITY REDUCED [None]
